FAERS Safety Report 9631421 (Version 1)
Quarter: 2013Q4

REPORT INFORMATION
  Report Type: Spontaneous
  Country: DE (occurrence: None)
  Receive Date: 20131015
  Receipt Date: 20131015
  Transmission Date: 20140711
  Serious: Yes (Hospitalization)
  Sender: FDA-Public Use
  Company Number: AUR-APL-2013-08310

PATIENT
  Age: 50 Year
  Sex: Male

DRUGS (6)
  1. AMLODIPINE [Suspect]
     Indication: HYPERTENSION
     Dosage: 10 MG  (10 MG, 1 IN 1 D), ORAL
     Route: 048
     Dates: start: 201211, end: 201303
  2. AMLODIPINE [Suspect]
     Indication: HYPERTENSION
     Dosage: 5 MG  (5 MG, 1 IN 1 D), ORAL
     Route: 048
     Dates: start: 201101, end: 201211
  3. METOPROLOLSUCCINAT STADA (METOPROLOL SUCCINATE) [Concomitant]
  4. RAMIPRIL PLUS (SALUTEC) [Concomitant]
  5. EUTHYROX (LEVOTHYROXINE SODIUM)(TABLET)(LEVOTHYROXINE SODIUM) [Concomitant]
  6. OMEP (OMEPRAZOLE) [Concomitant]

REACTIONS (2)
  - Chest pain [None]
  - Ear discomfort [None]
